FAERS Safety Report 20949486 (Version 1)
Quarter: 2022Q2

REPORT INFORMATION
  Report Type: Other
  Country: DE (occurrence: DE)
  Receive Date: 20220613
  Receipt Date: 20220613
  Transmission Date: 20220721
  Serious: Yes (Other)
  Sender: FDA-Public Use
  Company Number: DE-CELLTRION INC.-2022DE008749

PATIENT

DRUGS (13)
  1. RITUXIMAB [Suspect]
     Active Substance: RITUXIMAB
     Indication: Diffuse large B-cell lymphoma
     Dosage: 1ST LINE, R-CHOP, 8 CYCLES
     Route: 065
     Dates: start: 20181101, end: 20190208
  2. RITUXIMAB [Suspect]
     Active Substance: RITUXIMAB
     Dosage: R-ICE, 8 CYCLES
     Route: 065
     Dates: start: 20190726, end: 20190729
  3. RITUXIMAB [Suspect]
     Active Substance: RITUXIMAB
     Dosage: 2ND LINE, R-DHAOX, 1 CYCLE
     Route: 065
     Dates: start: 20190705, end: 20190708
  4. CYTARABINE [Suspect]
     Active Substance: CYTARABINE
     Indication: Diffuse large B-cell lymphoma
     Dosage: 2ND LINE, R-DHAOX, 1 CYCLE
     Route: 065
     Dates: start: 20190705, end: 20190708
  5. PREDNISOLONE [Suspect]
     Active Substance: PREDNISOLONE
     Indication: Diffuse large B-cell lymphoma
     Dosage: 1ST LINE, R-CHOP, 8 CYCLES
     Route: 065
     Dates: start: 20181101, end: 20190208
  6. OXALIPLATIN [Suspect]
     Active Substance: OXALIPLATIN
     Indication: Diffuse large B-cell lymphoma
     Dosage: 2ND LINE, R-DHAOX, 1 CYCLE
     Route: 065
     Dates: start: 20190705, end: 20190708
  7. DEXAMETHASONE [Suspect]
     Active Substance: DEXAMETHASONE
     Indication: Diffuse large B-cell lymphoma
     Dosage: 2ND LINE, R-DHAOX, 1 CYCLE
     Route: 065
     Dates: start: 20190705, end: 20190708
  8. CARBOPLATIN [Suspect]
     Active Substance: CARBOPLATIN
     Indication: Diffuse large B-cell lymphoma
     Dosage: AUC 5
     Route: 065
     Dates: start: 20190726, end: 20190729
  9. ONCOVIN [Suspect]
     Active Substance: VINCRISTINE SULFATE
     Indication: Diffuse large B-cell lymphoma
     Dosage: 2 MG (1ST LINE, R-CHOP, 8 CYCLES)
     Route: 065
     Dates: start: 20181101, end: 20190208
  10. CYCLOPHOSPHAMIDE [Suspect]
     Active Substance: CYCLOPHOSPHAMIDE
     Indication: Diffuse large B-cell lymphoma
     Dosage: 1ST LINE, R-CHOP, 8 CYCLES
     Route: 065
     Dates: start: 20181101, end: 20190208
  11. DOXORUBICIN [Suspect]
     Active Substance: DOXORUBICIN
     Indication: Diffuse large B-cell lymphoma
     Dosage: 1ST LINE, R-CHOP, 8 CYCLES
     Route: 065
     Dates: start: 20181101, end: 20190208
  12. ETOPOSIDE [Suspect]
     Active Substance: ETOPOSIDE
     Indication: Diffuse large B-cell lymphoma
     Dosage: R-ICE, 8 CYCLES
     Route: 065
     Dates: start: 20190726, end: 20190729
  13. IFOSFAMIDE [Suspect]
     Active Substance: IFOSFAMIDE
     Indication: Diffuse large B-cell lymphoma
     Dosage: 500 MG/M2
     Route: 065
     Dates: start: 20190726, end: 20190729

REACTIONS (1)
  - Neuropathy peripheral [Unknown]
